FAERS Safety Report 7311365-5 (Version None)
Quarter: 2011Q1

REPORT INFORMATION
  Report Type: 
  Country: None (occurrence: None)
  Receive Date: 20110224
  Receipt Date: 20110216
  Transmission Date: 20110831
  Serious: Yes (Death)
  Sender: FDA-Public Use
  Company Number: US-MYLANLABS-2011S1003161

PATIENT
  Age: 6 Year
  Sex: Male

DRUGS (2)
  1. AMNESTEEM [Suspect]
     Indication: NEUROBLASTOMA
  2. AMNESTEEM [Suspect]

REACTIONS (2)
  - ABDOMINAL PAIN [None]
  - POST PROCEDURAL COMPLICATION [None]
